FAERS Safety Report 20817585 (Version 3)
Quarter: 2022Q3

REPORT INFORMATION
  Report Type: Report from Study
  Country: US (occurrence: US)
  Receive Date: 20220512
  Receipt Date: 20220701
  Transmission Date: 20221026
  Serious: Yes (Death, Life-Threatening, Hospitalization)
  Sender: FDA-Public Use
  Company Number: US-ARGENX-2022-ARGX-US000733

PATIENT

DRUGS (1)
  1. VYVGART [Suspect]
     Active Substance: EFGARTIGIMOD ALFA-FCAB
     Indication: Myasthenia gravis
     Dosage: UNK
     Dates: start: 20220415

REACTIONS (6)
  - Dependence on respirator [Unknown]
  - Dysphagia [Unknown]
  - Dyspnoea [Unknown]
  - Pneumonia [Unknown]
  - Muscular weakness [Unknown]
  - Death [Fatal]

NARRATIVE: CASE EVENT DATE: 20220506
